FAERS Safety Report 8460220-6 (Version None)
Quarter: 2012Q2

REPORT INFORMATION
  Report Type: 
  Country: None (occurrence: None)
  Receive Date: 20120323
  Receipt Date: 20110914
  Transmission Date: 20120825
  Serious: Yes (Hospitalization)
  Sender: FDA-Public Use
  Company Number: 163-21880-11091768

PATIENT
  Age: 83 Year
  Sex: Female

DRUGS (1)
  1. REVLIMID [Suspect]
     Indication: MYELODYSPLASTIC SYNDROME
     Dosage: 10 MG, DAILY FOR 14 DAYS, OFF 7 DAYS, PO
     Route: 048
     Dates: start: 20110908, end: 20110912

REACTIONS (3)
  - PNEUMONIA [None]
  - FULL BLOOD COUNT DECREASED [None]
  - DEHYDRATION [None]
